FAERS Safety Report 6171966-7 (Version None)
Quarter: 2009Q2

REPORT INFORMATION
  Report Type: 
  Country: None (occurrence: None)
  Receive Date: 20090429
  Receipt Date: 20090420
  Transmission Date: 20091009
  Serious: Yes (Other)
  Sender: FDA-Public Use
  Company Number: PHHY2009BR15264

PATIENT
  Sex: Male

DRUGS (7)
  1. DIOVAN [Suspect]
     Indication: HYPERTENSION
     Dosage: 80 MG, 1 TABLET A DAY IN THE MORNING
     Route: 048
  2. DIOVAN [Suspect]
     Dosage: 40 MG
     Route: 048
  3. DIOVAN [Suspect]
     Dosage: 80 MG
     Route: 048
  4. ATENOLOL [Concomitant]
     Dosage: 1 TABLET A DAY IN THE MORNING
  5. MACRODANTINA [Concomitant]
     Dosage: 1 TABLET A DAY AT NIGHT
     Dates: start: 20080501, end: 20080912
  6. VITAMIN B6 [Concomitant]
  7. FOLIC ACID [Concomitant]

REACTIONS (9)
  - ANAEMIA [None]
  - DRY SKIN [None]
  - GASTRITIS [None]
  - HYPERTENSION [None]
  - INFLUENZA [None]
  - RHINITIS [None]
  - SKIN EXFOLIATION [None]
  - STRESS [None]
  - WEIGHT DECREASED [None]
